FAERS Safety Report 4515293-X (Version None)
Quarter: 2004Q4

REPORT INFORMATION
  Report Type: 
  Country: None (occurrence: None)
  Receive Date: 20041130
  Receipt Date: 20041130
  Transmission Date: 20050328
  Serious: Yes (Hospitalization)
  Sender: FDA-Public Use
  Company Number: None

PATIENT
  Sex: Male

DRUGS (17)
  1. FERROUS SULFATE TAB [Suspect]
     Indication: ANAEMIA
     Dosage: 325MG TID ORAL
     Route: 048
  2. LOPERAMIDE [Suspect]
     Indication: DIARRHOEA
     Dosage: 2 MG PRN ORAL
     Route: 048
  3. APAP TAB [Concomitant]
  4. ALLOPURINOL [Concomitant]
  5. ASPIRIN [Concomitant]
  6. CITALOPRAM [Concomitant]
  7. DOCUSATE [Concomitant]
  8. HYDROCHLOROTHIAZIDE [Concomitant]
  9. HYDROCORTISONE SUPPOSITORIES [Concomitant]
  10. INSULIN [Concomitant]
  11. LISINOPRIL [Concomitant]
  12. LOVASTATIN [Concomitant]
  13. METOCLOPRAMIDE [Concomitant]
  14. METOPROLOL [Concomitant]
  15. NAPROXEN [Concomitant]
  16. OMEPRAZOLE [Concomitant]
  17. TERAZOSIN HCL [Concomitant]

REACTIONS (1)
  - ILEUS [None]
